FAERS Safety Report 24794494 (Version 1)
Quarter: 2024Q4

REPORT INFORMATION
  Report Type: Report from Study
  Country: MX (occurrence: MX)
  Receive Date: 20241231
  Receipt Date: 20241231
  Transmission Date: 20250115
  Serious: Yes (Other)
  Sender: NOVARTIS
  Company Number: MX-002147023-NVSC2024MX096708

PATIENT
  Age: 52 Year
  Sex: Female
  Weight: 82 kg

DRUGS (5)
  1. TASIGNA [Suspect]
     Active Substance: NILOTINIB
     Indication: Chronic myeloid leukaemia
     Dosage: 3 DOSAGE FORM (2 CAPSULES IN THE MORNING AND 1 CAPSULE 12 HOURS LATER)
     Route: 048
     Dates: start: 201910
  2. TASIGNA [Suspect]
     Active Substance: NILOTINIB
     Dosage: 400 MG (2 CAPSULES OF 200 MG), BID, IN THE MORNING AND AT NIGHT
     Route: 048
  3. TASIGNA [Suspect]
     Active Substance: NILOTINIB
     Dosage: 400 MG, Q12H (2 CAPSULES OF 200 MG)
     Route: 048
  4. TASIGNA [Suspect]
     Active Substance: NILOTINIB
     Dosage: 200 MG, (2 CAPSULES OF 200 MG IN THE MORNING AND 1 CAPSULE OF 200 MG AT NIGHT)
     Route: 048
  5. TASIGNA [Suspect]
     Active Substance: NILOTINIB
     Dosage: 200 MG, QD (3)
     Route: 048

REACTIONS (20)
  - Neoplasm malignant [Unknown]
  - Philadelphia chromosome positive [Unknown]
  - Hypersensitivity [Recovering/Resolving]
  - Liver disorder [Not Recovered/Not Resolved]
  - Gastritis [Recovered/Resolved]
  - Urinary tract infection [Recovered/Resolved]
  - Rash [Recovering/Resolving]
  - Pigmentation disorder [Unknown]
  - Blood triglycerides increased [Unknown]
  - High density lipoprotein increased [Unknown]
  - Dysgeusia [Unknown]
  - Decreased appetite [Not Recovered/Not Resolved]
  - Anxiety [Unknown]
  - Burning sensation [Unknown]
  - Stress [Recovered/Resolved]
  - Abdominal discomfort [Recovered/Resolved]
  - Dyspepsia [Not Recovered/Not Resolved]
  - Oropharyngeal discomfort [Recovered/Resolved]
  - Tremor [Unknown]
  - Blister [Recovering/Resolving]

NARRATIVE: CASE EVENT DATE: 20191001
